FAERS Safety Report 5492539-5 (Version None)
Quarter: 2007Q4

REPORT INFORMATION
  Report Type: 
  Country: None (occurrence: None)
  Receive Date: 20071022
  Receipt Date: 20071010
  Transmission Date: 20080405
  Serious: Yes (Other)
  Sender: FDA-Public Use
  Company Number: CA-SHR-CA-2007-038984

PATIENT

DRUGS (1)
  1. BETASERON [Suspect]

REACTIONS (1)
  - SPINE MALFORMATION [None]
